FAERS Safety Report 23214688 (Version 2)
Quarter: 2023Q4

REPORT INFORMATION
  Report Type: Spontaneous
  Country: US (occurrence: US)
  Receive Date: 20231121
  Receipt Date: 20231123
  Transmission Date: 20240109
  Serious: No
  Sender: FDA-Public Use
  Company Number: US-ELI_LILLY_AND_COMPANY-US202311011890

PATIENT
  Sex: Female

DRUGS (8)
  1. FORTEO [Suspect]
     Active Substance: TERIPARATIDE
     Indication: Hypoparathyroidism
     Dosage: UNK UNK, UNKNOWN
     Route: 065
     Dates: start: 2017
  2. FORTEO [Suspect]
     Active Substance: TERIPARATIDE
     Indication: Hypoparathyroidism
     Dosage: UNK UNK, UNKNOWN
     Route: 065
     Dates: start: 2017
  3. FORTEO [Suspect]
     Active Substance: TERIPARATIDE
     Indication: Hypoparathyroidism
     Dosage: UNK UNK, UNKNOWN
     Route: 065
     Dates: start: 2017
  4. FORTEO [Suspect]
     Active Substance: TERIPARATIDE
     Indication: Hypocalcaemia
     Dosage: 3 U, BID
     Route: 065
  5. FORTEO [Suspect]
     Active Substance: TERIPARATIDE
     Indication: Hypocalcaemia
     Dosage: 3 U, BID
     Route: 065
  6. FORTEO [Suspect]
     Active Substance: TERIPARATIDE
     Indication: Hypocalcaemia
     Dosage: 3 U, BID
     Route: 065
  7. FORTEO [Suspect]
     Active Substance: TERIPARATIDE
     Dosage: 3 U, BID
     Route: 065
  8. FORTEO [Suspect]
     Active Substance: TERIPARATIDE
     Dosage: 3 U, BID
     Route: 065

REACTIONS (4)
  - Stress [Unknown]
  - Brain fog [Unknown]
  - Off label use [Unknown]
  - Inappropriate schedule of product administration [Unknown]
